FAERS Safety Report 18910440 (Version 5)
Quarter: 2021Q1

REPORT INFORMATION
  Report Type: Spontaneous
  Country: US (occurrence: US)
  Receive Date: 20210218
  Receipt Date: 20210330
  Transmission Date: 20210420
  Serious: No
  Sender: FDA-Public Use
  Company Number: US-GLAXOSMITHKLINE-US2021044066

PATIENT
  Sex: Female

DRUGS (1)
  1. BREO ELLIPTA [Suspect]
     Active Substance: FLUTICASONE FUROATE\VILANTEROL TRIFENATATE
     Indication: ASTHMA
     Dosage: 1 PUFF(S), 1D, 200/25 MCG
     Route: 055
     Dates: start: 20201228, end: 20210216

REACTIONS (5)
  - Dyspnoea [Unknown]
  - Cough [Unknown]
  - Product complaint [Unknown]
  - Insomnia [Unknown]
  - Drug ineffective [Unknown]
